FAERS Safety Report 18654431 (Version 1)
Quarter: 2020Q4

REPORT INFORMATION
  Report Type: Other
  Country: US (occurrence: US)
  Receive Date: 20201223
  Receipt Date: 20201223
  Transmission Date: 20210114
  Serious: Yes (Other)
  Sender: FDA-Public Use
  Company Number: US-CHEMI SPA-2103385

PATIENT
  Age: 12 Year
  Sex: Male

DRUGS (3)
  1. PENTAMIDINE [Concomitant]
     Active Substance: PENTAMIDINE
  2. LEVETIRACETAM. [Concomitant]
     Active Substance: LEVETIRACETAM
  3. TEMOZOLOMIDE. [Suspect]
     Active Substance: TEMOZOLOMIDE
     Indication: ASTROBLASTOMA

REACTIONS (4)
  - Diabetes insipidus [Unknown]
  - Polydipsia [Unknown]
  - Thrombocytopenia [Unknown]
  - Polyuria [Unknown]
